FAERS Safety Report 9337189 (Version 1)
Quarter: 2013Q2

REPORT INFORMATION
  Report Type: Report from Study
  Country: BR (occurrence: BR)
  Receive Date: 20130607
  Receipt Date: 20130607
  Transmission Date: 20140414
  Serious: Yes (Other)
  Sender: FDA-Public Use
  Company Number: BR-ABBOTT-13P-020-1099504-00

PATIENT
  Age: 50 Year
  Sex: Female
  Weight: 75 kg

DRUGS (4)
  1. HUMIRA [Suspect]
     Indication: RHEUMATOID ARTHRITIS
     Route: 058
     Dates: start: 20101019, end: 201302
  2. HUMIRA [Suspect]
     Route: 058
     Dates: start: 201304
  3. METHOTREXATE [Concomitant]
     Indication: RHEUMATOID ARTHRITIS
     Route: 048
     Dates: start: 2012
  4. FOLIC ACID [Concomitant]
     Indication: RHEUMATOID ARTHRITIS
     Dosage: ONE TABLET DAILY FIVE TIMES A WEEK
     Route: 048
     Dates: start: 2012

REACTIONS (8)
  - Arthropathy [Unknown]
  - Facial bones fracture [Recovered/Resolved]
  - Face injury [Recovered/Resolved]
  - Accident [Recovered/Resolved]
  - Mouth injury [Recovered/Resolved]
  - Mouth injury [Recovered/Resolved]
  - Dizziness [Recovered/Resolved]
  - Alopecia [Recovering/Resolving]
